FAERS Safety Report 12777465 (Version 1)
Quarter: 2016Q3

REPORT INFORMATION
  Report Type: Spontaneous
  Country: US (occurrence: US)
  Receive Date: 20160924
  Receipt Date: 20160924
  Transmission Date: 20161109
  Serious: No
  Sender: FDA-Public Use
  Company Number: US-TEVA-596309USA

PATIENT
  Sex: Male
  Weight: 75 kg

DRUGS (8)
  1. ALPRAZOLAM. [Suspect]
     Active Substance: ALPRAZOLAM
     Indication: ANXIETY
     Dosage: 3 MILLIGRAM DAILY;
     Route: 048
     Dates: start: 1986
  2. CLONAZEPAM. [Suspect]
     Active Substance: CLONAZEPAM
     Indication: PARAESTHESIA
  3. MAALOX ANTACID [Concomitant]
     Active Substance: ALUMINUM HYDROXIDE\DIMETHICONE\MAGNESIUM HYDROXIDE
  4. CLONAZEPAM. [Suspect]
     Active Substance: CLONAZEPAM
     Indication: HEADACHE
     Dosage: 1 MILLIGRAM DAILY; EVERY NIGHT BEFORE BED
     Route: 048
     Dates: start: 20150904
  5. ALPRAZOLAM. [Suspect]
     Active Substance: ALPRAZOLAM
     Indication: PANIC DISORDER
  6. MAG-OX [Concomitant]
     Active Substance: MAGNESIUM OXIDE
     Dosage: 400 MILLIGRAM DAILY;
     Dates: start: 201503
  7. TYLENOL [Concomitant]
     Active Substance: ACETAMINOPHEN
     Indication: PAIN
     Dosage: WHEN NEEDED
  8. LOTREL [Concomitant]
     Active Substance: AMLODIPINE BESYLATE\BENAZEPRIL HYDROCHLORIDE
     Indication: HYPERTENSION
     Dosage: 5MG/10MG
     Route: 048

REACTIONS (2)
  - Product use issue [Unknown]
  - Drug ineffective [Unknown]
